FAERS Safety Report 8884879 (Version 2)
Quarter: 2012Q4

REPORT INFORMATION
  Report Type: 
  Country: US (occurrence: US)
  Receive Date: 20121102
  Receipt Date: 20121214
  Transmission Date: 20130627
  Serious: Yes (Other)
  Sender: FDA-Public Use
  Company Number: US-PFIZER INC-2012274465

PATIENT
  Age: 61 Year
  Sex: Female
  Weight: 90.25 kg

DRUGS (3)
  1. LYRICA [Suspect]
     Indication: FIBROMYALGIA
     Dosage: 300 mg, UNK
     Dates: start: 2007
  2. LYRICA [Suspect]
     Indication: RADICULOPATHY
     Dosage: 75 mg, 4x/day
     Route: 048
     Dates: start: 200812, end: 20121001
  3. LYRICA [Suspect]
     Indication: BACK DISORDER

REACTIONS (4)
  - Nausea [Not Recovered/Not Resolved]
  - Gastric disorder [Not Recovered/Not Resolved]
  - Abdominal pain upper [Not Recovered/Not Resolved]
  - Abdominal pain [Not Recovered/Not Resolved]
